FAERS Safety Report 25472660 (Version 1)
Quarter: 2025Q2

REPORT INFORMATION
  Report Type: Spontaneous
  Country: US (occurrence: US)
  Receive Date: 20250624
  Receipt Date: 20250624
  Transmission Date: 20250717
  Serious: Yes (Other)
  Sender: ABBVIE
  Company Number: US-ABBVIE-6336909

PATIENT

DRUGS (1)
  1. REFRESH OPTIVE [Suspect]
     Active Substance: CARBOXYMETHYLCELLULOSE SODIUM\GLYCERIN
     Indication: Eye pain
     Route: 047
     Dates: start: 202506

REACTIONS (5)
  - Blindness [Unknown]
  - Lacrimation increased [Unknown]
  - Eye discharge [Unknown]
  - Pain [Recovering/Resolving]
  - Diplopia [Unknown]

NARRATIVE: CASE EVENT DATE: 20250601
